FAERS Safety Report 10583436 (Version 1)
Quarter: 2014Q4

REPORT INFORMATION
  Report Type: Report from Study
  Country: US (occurrence: US)
  Receive Date: 20141114
  Receipt Date: 20141114
  Transmission Date: 20150529
  Serious: No
  Sender: FDA-Public Use
  Company Number: US-AMGEN-USASL2014087875

PATIENT
  Age: 44 Year
  Sex: Female

DRUGS (1)
  1. ENBREL [Suspect]
     Active Substance: ETANERCEPT
     Indication: RHEUMATOID ARTHRITIS
     Dosage: 25 MG, 2 TIMES/WK
     Route: 065
     Dates: start: 20141017

REACTIONS (14)
  - Pain [Not Recovered/Not Resolved]
  - Decreased appetite [Not Recovered/Not Resolved]
  - Injection site bruising [Not Recovered/Not Resolved]
  - Constipation [Not Recovered/Not Resolved]
  - Pain in extremity [Recovered/Resolved]
  - Rhinorrhoea [Not Recovered/Not Resolved]
  - Oropharyngeal pain [Not Recovered/Not Resolved]
  - Injection site pain [Not Recovered/Not Resolved]
  - Abdominal pain [Not Recovered/Not Resolved]
  - Back pain [Not Recovered/Not Resolved]
  - Fatigue [Not Recovered/Not Resolved]
  - Gastrointestinal pain [Not Recovered/Not Resolved]
  - Nausea [Not Recovered/Not Resolved]
  - Injection site urticaria [Not Recovered/Not Resolved]

NARRATIVE: CASE EVENT DATE: 201410
